FAERS Safety Report 14477599 (Version 1)
Quarter: 2018Q1

REPORT INFORMATION
  Report Type: Report from Study
  Country: US (occurrence: US)
  Receive Date: 20180201
  Receipt Date: 20180201
  Transmission Date: 20180509
  Serious: No
  Sender: FDA-Public Use
  Company Number: US-EXELIXIS-CABO-17009917

PATIENT
  Sex: Female

DRUGS (9)
  1. BRILINTA [Concomitant]
     Active Substance: TICAGRELOR
  2. ASPIRIN. [Concomitant]
     Active Substance: ASPIRIN
  3. CABOMETYX [Suspect]
     Active Substance: CABOZANTINIB S-MALATE
     Indication: LUNG DISORDER
  4. CABOMETYX [Suspect]
     Active Substance: CABOZANTINIB S-MALATE
     Indication: CHRONIC KIDNEY DISEASE
  5. RED YEAST RICE WITH PLANT STEROLS [Concomitant]
  6. CABOMETYX [Suspect]
     Active Substance: CABOZANTINIB S-MALATE
     Indication: RENAL CANCER
     Dosage: UNK
     Dates: start: 201707
  7. CALCIUM [Concomitant]
     Active Substance: CALCIUM
  8. METOPROLOL. [Concomitant]
     Active Substance: METOPROLOL
  9. AMLODIPINE [Concomitant]
     Active Substance: AMLODIPINE BESYLATE

REACTIONS (1)
  - Skin exfoliation [Unknown]
